FAERS Safety Report 10977395 (Version 1)
Quarter: 2015Q2

REPORT INFORMATION
  Report Type: Spontaneous
  Country: US (occurrence: None)
  Receive Date: 20150401
  Receipt Date: 20150401
  Transmission Date: 20150821
  Serious: No
  Sender: FDA-Public Use
  Company Number: None

PATIENT

DRUGS (5)
  1. HCTZ [Suspect]
     Active Substance: HYDROCHLOROTHIAZIDE
  2. TOPROL XL [Suspect]
     Active Substance: METOPROLOL SUCCINATE
  3. AMLODIPINE BESYLATE. [Suspect]
     Active Substance: AMLODIPINE BESYLATE
  4. FENOFIBRATE. [Suspect]
     Active Substance: FENOFIBRATE
  5. TRIAMTERENE HCTZ [Suspect]
     Active Substance: HYDROCHLOROTHIAZIDE\TRIAMTERENE

REACTIONS (4)
  - Product substitution issue [None]
  - Heart rate increased [None]
  - Drug ineffective [None]
  - Blood pressure increased [None]

NARRATIVE: CASE EVENT DATE: 20150303
